FAERS Safety Report 7964792-7 (Version None)
Quarter: 2011Q4

REPORT INFORMATION
  Report Type: 
  Country: None (occurrence: None)
  Receive Date: 20111208
  Receipt Date: 20111128
  Transmission Date: 20120403
  Serious: Yes (Other)
  Sender: FDA-Public Use
  Company Number: US-BAYER-2011-050107

PATIENT
  Age: 29 Year
  Sex: Female
  Weight: 122.45 kg

DRUGS (5)
  1. YASMIN [Suspect]
     Indication: PREMENSTRUAL SYNDROME
     Dosage: UNK
     Route: 048
     Dates: start: 20030501, end: 20070301
  2. METFORMIN HCL [Concomitant]
     Dosage: UNK
     Dates: start: 20040101
  3. CITALOPRAM [Concomitant]
     Dosage: UNK
     Dates: start: 20080101, end: 20100101
  4. YAZ [Suspect]
     Indication: PREMENSTRUAL SYNDROME
     Dosage: UNK
     Route: 048
     Dates: start: 20080414, end: 20090801
  5. LEVOXYL [Concomitant]
     Dosage: UNK
     Dates: start: 20040101

REACTIONS (8)
  - BILIARY DYSKINESIA [None]
  - ANXIETY [None]
  - CHOLECYSTITIS CHRONIC [None]
  - GENERAL PHYSICAL HEALTH DETERIORATION [None]
  - INJURY [None]
  - GALLBLADDER INJURY [None]
  - EMOTIONAL DISTRESS [None]
  - PAIN [None]
